APPROVED DRUG PRODUCT: LEVOCETIRIZINE DIHYDROCHLORIDE
Active Ingredient: LEVOCETIRIZINE DIHYDROCHLORIDE
Strength: 5MG
Dosage Form/Route: TABLET;ORAL
Application: A211551 | Product #001
Applicant: SANKALP LIFECARE INC
Approved: Nov 20, 2018 | RLD: No | RS: No | Type: OTC